FAERS Safety Report 6911789-1 (Version None)
Quarter: 2010Q3

REPORT INFORMATION
  Report Type: 
  Country: None (occurrence: None)
  Receive Date: 20100806
  Receipt Date: 20070821
  Transmission Date: 20110219
  Serious: No
  Sender: FDA-Public Use
  Company Number: US-PFIZER INC-2007070019

PATIENT
  Sex: Female
  Weight: 68.04 kg

DRUGS (2)
  1. DETROL LA [Suspect]
     Dates: start: 20070101, end: 20070818
  2. DRUG, UNSPECIFIED [Concomitant]

REACTIONS (3)
  - ERUCTATION [None]
  - SENSATION OF FOREIGN BODY [None]
  - STRESS [None]
